FAERS Safety Report 13525321 (Version 1)
Quarter: 2017Q2

REPORT INFORMATION
  Report Type: Spontaneous
  Country: US (occurrence: US)
  Receive Date: 20170508
  Receipt Date: 20170508
  Transmission Date: 20170830
  Serious: No
  Sender: FDA-Public Use
  Company Number: US-ROCHE-1155818

PATIENT
  Sex: Male

DRUGS (4)
  1. AREDS SUPPLEMENT NOS [Concomitant]
  2. AFLIBERCEPT [Concomitant]
     Active Substance: AFLIBERCEPT
  3. AVASTIN [Suspect]
     Active Substance: BEVACIZUMAB
     Indication: PRODUCT USED FOR UNKNOWN INDICATION
     Route: 065
  4. LUCENTIS [Concomitant]
     Active Substance: RANIBIZUMAB

REACTIONS (3)
  - Bedridden [Unknown]
  - Decreased appetite [Unknown]
  - Pain [Unknown]
